FAERS Safety Report 7080416-8 (Version None)
Quarter: 2010Q4

REPORT INFORMATION
  Report Type: 
  Country: None (occurrence: None)
  Receive Date: 20101103
  Receipt Date: 20101026
  Transmission Date: 20110411
  Serious: Yes (Other)
  Sender: FDA-Public Use
  Company Number: BR-BAYER-201015685LA

PATIENT
  Age: 29 Year
  Sex: Female
  Weight: 54 kg

DRUGS (4)
  1. YAZ [Suspect]
     Indication: MENSTRUAL DISORDER
     Route: 048
     Dates: start: 20100501
  2. CAPTOPRIL [Concomitant]
     Indication: HYPERTENSION
     Dosage: 1 TABLET THREE TIMES A DAY
     Route: 048
     Dates: start: 20060101
  3. SIMVASTATIN [Concomitant]
     Indication: BLOOD CHOLESTEROL INCREASED
     Route: 048
     Dates: start: 20060101
  4. EPOGEN [Concomitant]
     Indication: RENAL FAILURE
     Dosage: UNIT DOSE: 1 ML
     Dates: start: 20090101

REACTIONS (2)
  - HYPERGLYCAEMIA [None]
  - RENAL FAILURE [None]
